FAERS Safety Report 24640359 (Version 1)
Quarter: 2024Q4

REPORT INFORMATION
  Report Type: Spontaneous
  Country: US (occurrence: US)
  Receive Date: 20241120
  Receipt Date: 20241120
  Transmission Date: 20250115
  Serious: Yes (Hospitalization)
  Sender: AMGEN
  Company Number: US-AMGEN-USASP2024224211

PATIENT
  Age: 12 Year
  Sex: Male

DRUGS (3)
  1. PREDNISONE [Suspect]
     Active Substance: PREDNISONE
     Indication: Duchenne muscular dystrophy
     Dosage: UNK, QD
     Route: 048
  2. FORDADISTROGENE MOVAPARVOVEC [Suspect]
     Active Substance: FORDADISTROGENE MOVAPARVOVEC
     Indication: Duchenne muscular dystrophy
     Dosage: UNK, ON DAY 1
     Route: 040
  3. METHYLPREDNISOLONE [Suspect]
     Active Substance: METHYLPREDNISOLONE
     Indication: Duchenne muscular dystrophy
     Dosage: 1 -2 MG/KG (1-4 HOUR)
     Route: 040

REACTIONS (4)
  - Thrombotic microangiopathy [Recovered/Resolved]
  - Adverse event [Unknown]
  - Weight abnormal [Unknown]
  - Off label use [Unknown]
